FAERS Safety Report 14479872 (Version 1)
Quarter: 2018Q1

REPORT INFORMATION
  Report Type: Spontaneous
  Country: IT (occurrence: IT)
  Receive Date: 20180202
  Receipt Date: 20180202
  Transmission Date: 20180509
  Serious: Yes (Hospitalization)
  Sender: FDA-Public Use
  Company Number: IT-MYLANLABS-2018M1006181

PATIENT
  Age: 98 Year
  Sex: Male

DRUGS (2)
  1. CIPROFLOXACIN. [Suspect]
     Active Substance: CIPROFLOXACIN
     Indication: URINARY TRACT INFECTION
     Dosage: UNK
  2. DOXICICLINA                        /00055701/ [Concomitant]
     Indication: URINARY TRACT INFECTION
     Dosage: UNK

REACTIONS (5)
  - Acute hepatic failure [Unknown]
  - Decreased appetite [Unknown]
  - Insomnia [Unknown]
  - Confusional state [Unknown]
  - Agitation [Unknown]
